FAERS Safety Report 15449945 (Version 1)
Quarter: 2018Q4

REPORT INFORMATION
  Report Type: Spontaneous
  Country: DE (occurrence: DE)
  Receive Date: 20181001
  Receipt Date: 20181001
  Transmission Date: 20190204
  Serious: Yes (Hospitalization, Other)
  Sender: FDA-Public Use
  Company Number: DE-SUN PHARMACEUTICAL INDUSTRIES LTD-2018RR-185801

PATIENT
  Age: 50 Year
  Sex: Male
  Weight: 87 kg

DRUGS (16)
  1. OXALIPLATIN. [Suspect]
     Active Substance: OXALIPLATIN
     Dosage: 210.08 MG, 3/WEEK
     Route: 042
     Dates: start: 20160412, end: 20160412
  2. BEVACIZUMAB. [Suspect]
     Active Substance: BEVACIZUMAB
     Indication: COLORECTAL CANCER
     Dosage: LAST MOST RECENT DOSE PRIOR TO SAE WAS ON : 22/MAR/2016
     Route: 042
     Dates: start: 20160209, end: 20160209
  3. OXALIPLATIN. [Suspect]
     Active Substance: OXALIPLATIN
     Dosage: 262.6 MG, 3/WEEK
     Route: 042
     Dates: start: 20160301, end: 20160301
  4. BEVACIZUMAB. [Suspect]
     Active Substance: BEVACIZUMAB
     Dosage: 742.5 MG, 3/WEEK
     Route: 042
     Dates: start: 20160818, end: 20160818
  5. OXALIPLATIN. [Suspect]
     Active Substance: OXALIPLATIN
     Dosage: 262.6 MG, 3/WEEK
     Route: 042
     Dates: start: 20160209, end: 20160209
  6. CAPECITABINE. [Suspect]
     Active Substance: CAPECITABINE
     Indication: COLORECTAL CANCER
     Dosage: PER DAY FOR 14 DAYS FOLLOWED BY A BREAK OF 7 DAYS.
     Route: 048
     Dates: start: 20160322
  7. CAPECITABINE. [Suspect]
     Active Substance: CAPECITABINE
     Dosage: 6000 MG, UNK
     Route: 048
     Dates: start: 20160613, end: 20160615
  8. CAPECITABINE. [Suspect]
     Active Substance: CAPECITABINE
     Dosage: 49000 MG, UNK
     Route: 048
     Dates: start: 20160412
  9. CAPECITABINE. [Suspect]
     Active Substance: CAPECITABINE
     Dosage: D1-14 FOLLOWED BY 7D PAUSE
     Route: 048
     Dates: start: 20160523, end: 20160526
  10. OXALIPLATIN. [Suspect]
     Active Substance: OXALIPLATIN
     Indication: COLORECTAL CANCER
     Dosage: 135.2 MG, 3/WEEK
     Route: 042
     Dates: start: 20160523
  11. OXALIPLATIN. [Suspect]
     Active Substance: OXALIPLATIN
     Dosage: 262.6 MG, 3/WEEK
     Route: 042
     Dates: start: 20160322, end: 20160322
  12. CAPECITABINE. [Suspect]
     Active Substance: CAPECITABINE
     Dosage: PER DAY FOR 14 DAYS FOLLOWED BY A BREAK OF 7 DAYS.
     Route: 048
     Dates: start: 20160209
  13. OXALIPLATIN. [Suspect]
     Active Substance: OXALIPLATIN
     Dosage: ()
     Route: 042
     Dates: start: 20160613
  14. CAPECITABINE. [Suspect]
     Active Substance: CAPECITABINE
     Dosage: 56000 MG, UNK
     Route: 048
     Dates: start: 20160301, end: 20160314
  15. TILIDIN [Concomitant]
     Active Substance: NALOXONE HYDROCHLORIDE\TILIDINE HYDROCHLORIDE
     Indication: PRODUCT USED FOR UNKNOWN INDICATION
     Dosage: ()
     Route: 065
  16. BEVACIZUMAB. [Suspect]
     Active Substance: BEVACIZUMAB
     Dosage: 645 MG, 3/WEEK
     Route: 042
     Dates: start: 20160412, end: 20160412

REACTIONS (8)
  - Dyspnoea exertional [Recovered/Resolved]
  - Fatigue [Recovered/Resolved]
  - Myalgia [Recovered/Resolved]
  - Anaemia [Not Recovered/Not Resolved]
  - Stoma site haemorrhage [Not Recovered/Not Resolved]
  - Stoma site haemorrhage [Recovered/Resolved]
  - Nausea [Recovered/Resolved]
  - Myalgia [Recovered/Resolved]

NARRATIVE: CASE EVENT DATE: 20160210
